FAERS Safety Report 13153173 (Version 3)
Quarter: 2017Q4

REPORT INFORMATION
  Report Type: Report from Study
  Country: None (occurrence: BR)
  Receive Date: 20170126
  Receipt Date: 20171106
  Transmission Date: 20180320
  Serious: Yes (Disabling, Other)
  Sender: FDA-Public Use
  Company Number: BR-ABBVIE-17P-020-1851875-00

PATIENT
  Sex: Female
  Weight: 45 kg

DRUGS (21)
  1. OMEPRAZOLE. [Concomitant]
     Active Substance: OMEPRAZOLE
     Indication: PROPHYLAXIS
  2. GLUCOSAMINE SULFATE [Concomitant]
     Active Substance: GLUCOSAMINE SULFATE
     Indication: ARTHROPATHY
     Route: 048
     Dates: start: 2007
  3. SIMVASTATIN. [Concomitant]
     Active Substance: SIMVASTATIN
     Indication: BLOOD CHOLESTEROL ABNORMAL
     Route: 048
     Dates: start: 2014
  4. VITAMIN B3 [Concomitant]
     Active Substance: NIACIN
     Indication: OSTEOPOROSIS
     Route: 048
     Dates: start: 2007
  5. DEFLAZACORT [Concomitant]
     Active Substance: DEFLAZACORT
     Indication: RHEUMATIC FEVER
  6. PAROXETINE. [Concomitant]
     Active Substance: PAROXETINE
     Indication: ANXIETY
     Route: 048
     Dates: start: 2014
  7. ARCOXIA [Concomitant]
     Active Substance: ETORICOXIB
     Indication: ARTHRITIS
     Route: 048
     Dates: start: 2009
  8. COLLAGEN [Concomitant]
     Active Substance: COLLAGEN
     Indication: CHONDROPATHY
     Route: 048
     Dates: start: 2007
  9. METHOTREXATE. [Concomitant]
     Active Substance: METHOTREXATE
     Indication: RHEUMATOID ARTHRITIS
     Route: 048
     Dates: start: 1998
  10. HUMIRA [Suspect]
     Active Substance: ADALIMUMAB
     Indication: RHEUMATOID ARTHRITIS
     Route: 058
     Dates: start: 20110104
  11. CHELATED IRON [Concomitant]
     Indication: OSTEOPOROSIS
     Route: 048
     Dates: start: 2007
  12. REUQUINOL [Concomitant]
     Active Substance: HYDROXYCHLOROQUINE SULFATE
     Indication: PAIN
     Route: 048
     Dates: start: 2012
  13. PROTOS [Concomitant]
     Indication: ARTHROPATHY
     Route: 048
     Dates: start: 2007
  14. MYOCRISIN [Concomitant]
     Indication: RHEUMATOID ARTHRITIS
     Route: 030
     Dates: start: 1998
  15. DEFLAZACORT [Concomitant]
     Active Substance: DEFLAZACORT
     Indication: PAIN
     Route: 048
     Dates: start: 2000
  16. DIOVAN [Concomitant]
     Active Substance: VALSARTAN
     Indication: HYPERTENSION
     Route: 048
     Dates: start: 1999
  17. ACTONEL [Concomitant]
     Active Substance: RISEDRONATE SODIUM
     Indication: OSTEOPOROSIS
     Route: 048
  18. CALCIUM [Concomitant]
     Active Substance: CALCIUM
     Indication: OSTEOPOROSIS
     Route: 048
     Dates: start: 2007
  19. POTASSIUM [Concomitant]
     Active Substance: POTASSIUM
     Indication: OSTEOPOROSIS
     Route: 048
     Dates: start: 2007
  20. PROFENID [Concomitant]
     Active Substance: KETOPROFEN
     Indication: PRODUCT USED FOR UNKNOWN INDICATION
     Route: 048
  21. OMEPRAZOLE. [Concomitant]
     Active Substance: OMEPRAZOLE
     Indication: GASTRIC DISORDER
     Route: 048
     Dates: start: 1999

REACTIONS (11)
  - Hypovitaminosis [Recovered/Resolved]
  - Memory impairment [Not Recovered/Not Resolved]
  - Device breakage [Recovered/Resolved]
  - Blood folate increased [Recovering/Resolving]
  - Mobility decreased [Recovered/Resolved]
  - Device dislocation [Unknown]
  - Foot deformity [Unknown]
  - Prosthesis implantation [Unknown]
  - Anaemia [Unknown]
  - Pain in extremity [Recovered/Resolved]
  - Shoulder arthroplasty [Unknown]

NARRATIVE: CASE EVENT DATE: 2013
